FAERS Safety Report 9716815 (Version 1)
Quarter: 2013Q4

REPORT INFORMATION
  Report Type: Report from Study
  Country: US (occurrence: US)
  Receive Date: 20131127
  Receipt Date: 20131127
  Transmission Date: 20140711
  Serious: Yes (Hospitalization)
  Sender: FDA-Public Use
  Company Number: US-ABBVIE-13P-163-1172276-00

PATIENT
  Age: 46 Year
  Sex: Female
  Weight: 56.75 kg

DRUGS (8)
  1. HUMIRA [Suspect]
     Indication: CROHN^S DISEASE
     Dates: start: 201208, end: 201309
  2. HUMIRA [Suspect]
     Dates: start: 201309
  3. IMURAN [Concomitant]
     Indication: CROHN^S DISEASE
  4. IRON [Concomitant]
     Indication: ANAEMIA
  5. MULTIVITAMIN [Concomitant]
     Indication: VITAMIN SUPPLEMENTATION
  6. VITAMIN B [Concomitant]
     Indication: VITAMIN SUPPLEMENTATION
  7. VITAMIN D NOS [Concomitant]
     Indication: VITAMIN SUPPLEMENTATION
  8. CALCIUM [Concomitant]
     Indication: VITAMIN SUPPLEMENTATION

REACTIONS (8)
  - Musculoskeletal chest pain [Recovering/Resolving]
  - Musculoskeletal chest pain [Not Recovered/Not Resolved]
  - Colonic abscess [Recovering/Resolving]
  - Large intestine perforation [Recovering/Resolving]
  - Tremor [Recovered/Resolved]
  - Hyperhidrosis [Recovered/Resolved]
  - Diarrhoea [Not Recovered/Not Resolved]
  - Anaemia [Not Recovered/Not Resolved]
